FAERS Safety Report 4782583-5 (Version None)
Quarter: 2005Q3

REPORT INFORMATION
  Report Type: 
  Country: None (occurrence: None)
  Receive Date: 20050929
  Receipt Date: 20050405
  Transmission Date: 20060218
  Serious: No
  Sender: FDA-Public Use
  Company Number: 401219

PATIENT
  Age: 73 Year
  Sex: Male

DRUGS (4)
  1. COREG [Suspect]
     Indication: HYPERTENSION
     Dosage: 12.5MG TWICE PER DAY
     Route: 048
     Dates: start: 20010101
  2. PLENDIL [Concomitant]
  3. FENOFIBRATE [Concomitant]
  4. TAMSULOSIN [Concomitant]

REACTIONS (1)
  - BLOOD PRESSURE FLUCTUATION [None]
